FAERS Safety Report 15839209 (Version 1)
Quarter: 2019Q1

REPORT INFORMATION
  Report Type: Report from Study
  Country: ES (occurrence: ES)
  Receive Date: 20190117
  Receipt Date: 20190117
  Transmission Date: 20190417
  Serious: Yes (Hospitalization)
  Sender: FDA-Public Use
  Company Number: ES-TEVA-2019-ES-999682

PATIENT
  Age: 2 Year
  Sex: Male
  Weight: 9.3 kg

DRUGS (14)
  1. AMBISOME 50 MG POLVO PARA DISPERSI?N PARA PERFUSI?N , 10 VIALES [Concomitant]
     Indication: PROPHYLAXIS
     Dosage: 10 MILLIGRAM DAILY;
     Route: 042
     Dates: start: 20171015, end: 20180116
  2. MESNA (1078A) [Concomitant]
     Active Substance: MESNA
     Indication: PROPHYLAXIS
     Dosage: 107 MILLIGRAM DAILY;
     Route: 042
     Dates: start: 20171215, end: 20171218
  3. URSODESOXICOLICO ACIDO (1174A) [Concomitant]
     Active Substance: URSODIOL
     Indication: PROPHYLAXIS
     Route: 048
     Dates: start: 20171216
  4. DEFIBROTIDA (8A) [Concomitant]
     Active Substance: DEFIBROTIDE (BOVINE)
     Indication: VENOOCCLUSIVE DISEASE
     Route: 042
     Dates: start: 20171215, end: 20180115
  5. CICLOFOSFAMIDA (120A) [Suspect]
     Active Substance: CYCLOPHOSPHAMIDE
     Indication: TRANSPLANT
     Dosage: 350 MILLIGRAM DAILY;
     Route: 042
     Dates: start: 20171215, end: 20171218
  6. CICLOSPORINA (406A) [Suspect]
     Active Substance: CYCLOSPORINE
     Indication: IMMUNODEFICIENCY
     Dosage: 25 MILLIGRAM DAILY;
     Route: 042
     Dates: start: 20171219
  7. OMEPRAZOL (2141A) [Concomitant]
     Active Substance: OMEPRAZOLE
     Indication: PROPHYLAXIS
     Dosage: 10 MILLIGRAM DAILY;
     Route: 048
     Dates: start: 20171005
  8. LARONIDASA (2903A) [Concomitant]
     Route: 042
     Dates: start: 20170927
  9. BUDESONIDA (2291A) [Concomitant]
     Active Substance: BUDESONIDE
     Route: 055
     Dates: start: 20170926
  10. FLUDARABINA FOSFATO (3698FO) [Suspect]
     Active Substance: FLUDARABINE PHOSPHATE
     Indication: TRANSPLANT
     Dosage: 14 MILLIGRAM DAILY;
     Route: 042
     Dates: start: 20171215, end: 20171218
  11. ENALAPRIL MALEATO (2142MA) [Concomitant]
     Active Substance: ENALAPRIL MALEATE
     Indication: HYPERTENSION
     Route: 048
     Dates: start: 20170926
  12. ACICLOVIR (201A) [Concomitant]
     Active Substance: ACYCLOVIR
     Indication: PROPHYLAXIS
     Route: 048
     Dates: start: 20171220, end: 20180119
  13. LEMTRADA [Suspect]
     Active Substance: ALEMTUZUMAB
     Indication: TRANSPLANT
     Dosage: 2 MILLIGRAM DAILY;
     Route: 042
     Dates: start: 20171215, end: 20171218
  14. AMLODIPINO (2503A) [Concomitant]
     Active Substance: AMLODIPINE BESYLATE
     Indication: HYPERTENSION
     Dosage: 2 MILLIGRAM DAILY;
     Route: 048
     Dates: start: 20171228

REACTIONS (3)
  - Gastroenteritis adenovirus [Not Recovered/Not Resolved]
  - H1N1 influenza [Recovered/Resolved]
  - Catheter site infection [Recovered/Resolved]

NARRATIVE: CASE EVENT DATE: 20171231
